FAERS Safety Report 6886794-4 (Version None)
Quarter: 2010Q3

REPORT INFORMATION
  Report Type: 
  Country: None (occurrence: None)
  Receive Date: 20100730
  Receipt Date: 20100720
  Transmission Date: 20110219
  Serious: Yes (Other)
  Sender: FDA-Public Use
  Company Number: DE-PFIZER INC-2010071330

PATIENT
  Age: 60 Year
  Sex: Female
  Weight: 65 kg

DRUGS (4)
  1. SORTIS [Suspect]
     Indication: HYPERCHOLESTEROLAEMIA
     Dosage: 20 MG, UNK
     Route: 048
     Dates: start: 20100430, end: 20100611
  2. PROVAS COMP [Concomitant]
     Dosage: 80 MG, UNK
  3. ASCO TOP [Concomitant]
     Dosage: 5 MG, AS NEEDED
  4. DICLOFENAC RESINATE [Concomitant]
     Dosage: UNK

REACTIONS (7)
  - ASTHENIA [None]
  - BACK PAIN [None]
  - GAIT DISTURBANCE [None]
  - HYPOAESTHESIA [None]
  - MUSCLE SPASMS [None]
  - MYALGIA [None]
  - PAIN IN EXTREMITY [None]
